FAERS Safety Report 9571833 (Version 2)
Quarter: 2013Q4

REPORT INFORMATION
  Report Type: Report from Study
  Country: VE (occurrence: VE)
  Receive Date: 20131001
  Receipt Date: 20131024
  Transmission Date: 20140711
  Serious: Yes (Other)
  Sender: FDA-Public Use
  Company Number: VE-ROCHE-1283416

PATIENT
  Sex: Female

DRUGS (4)
  1. OMALIZUMAB [Suspect]
     Indication: ASTHMA
     Route: 058
     Dates: start: 201301
  2. OMALIZUMAB [Suspect]
     Route: 065
  3. OMALIZUMAB [Suspect]
     Route: 065
  4. OMALIZUMAB [Suspect]
     Route: 058
     Dates: start: 201301, end: 201303

REACTIONS (2)
  - Blood immunoglobulin E increased [Unknown]
  - Drug ineffective [Unknown]
